FAERS Safety Report 10558154 (Version 1)
Quarter: 2014Q4

REPORT INFORMATION
  Report Type: Spontaneous
  Country: FR (occurrence: FR)
  Receive Date: 20141031
  Receipt Date: 20141031
  Transmission Date: 20150529
  Serious: Yes (Death)
  Sender: FDA-Public Use
  Company Number: FR-ASTRAZENECA-2014SE81870

PATIENT
  Age: 33120 Day
  Sex: Female

DRUGS (10)
  1. ZESTORETIC [Suspect]
     Active Substance: HYDROCHLOROTHIAZIDE\LISINOPRIL
     Dosage: 20 MG/12.5 MG, 1 DF EVRYDAY
     Route: 048
  2. IPRATROPIUM BROMIDE MONOHYDRATE [Suspect]
     Active Substance: IPRATROPIUM BROMIDE
     Route: 055
  3. MOGADON [Suspect]
     Active Substance: NITRAZEPAM
     Route: 048
     Dates: end: 20140925
  4. AMLODIPINE [Suspect]
     Active Substance: AMLODIPINE BESYLATE
     Route: 048
  5. EUPANTOL [Suspect]
     Active Substance: PANTOPRAZOLE SODIUM
     Route: 048
  6. CORDARONE [Suspect]
     Active Substance: AMIODARONE HYDROCHLORIDE
     Route: 048
  7. KARDEGIC [Suspect]
     Active Substance: ASPIRIN LYSINE
     Route: 048
  8. ZOPICLONE [Suspect]
     Active Substance: ZOPICLONE
     Route: 048
     Dates: start: 20140925
  9. SPECIAFOLDINE [Suspect]
     Active Substance: FOLIC ACID
     Route: 048
  10. TRANSIPEG [Suspect]
     Active Substance: POLYETHYLENE GLYCOL 3350
     Route: 048

REACTIONS (5)
  - Femur fracture [Fatal]
  - Musculoskeletal chest pain [Fatal]
  - Pneumonia aspiration [Fatal]
  - Acute respiratory distress syndrome [None]
  - Fall [Fatal]

NARRATIVE: CASE EVENT DATE: 20140930
